FAERS Safety Report 19502632 (Version 1)
Quarter: 2021Q3

REPORT INFORMATION
  Report Type: Spontaneous
  Country: US (occurrence: US)
  Receive Date: 20210707
  Receipt Date: 20210707
  Transmission Date: 20211014
  Serious: Yes (Life-Threatening, Hospitalization, Other)
  Sender: FDA-Public Use
  Company Number: US-HIKMA PHARMACEUTICALS USA INC.-US-H14001-21-54885

PATIENT
  Age: 62 Year
  Sex: Male

DRUGS (3)
  1. ACETYLSALICYLIC ACID [Concomitant]
     Active Substance: ASPIRIN
     Indication: CORONARY ARTERY DISEASE
     Dosage: UNKNOWN
     Route: 065
  2. HEPARIN [Suspect]
     Active Substance: HEPARIN SODIUM
     Indication: PRODUCT USED FOR UNKNOWN INDICATION
     Dosage: UNKNOWN
     Route: 065
  3. CLOPIDOGREL [Concomitant]
     Active Substance: CLOPIDOGREL BISULFATE
     Indication: CORONARY ARTERY DISEASE
     Dosage: UNKNOWN
     Route: 065

REACTIONS (6)
  - Heparin-induced thrombocytopenia [Recovering/Resolving]
  - Atrial fibrillation [Recovering/Resolving]
  - Vascular stent thrombosis [Recovering/Resolving]
  - Vascular graft thrombosis [Recovering/Resolving]
  - Electrocardiogram ST segment elevation [Recovering/Resolving]
  - Vascular graft occlusion [Recovering/Resolving]
